FAERS Safety Report 8553669-4 (Version None)
Quarter: 2012Q3

REPORT INFORMATION
  Report Type: 
  Country: None (occurrence: None)
  Receive Date: 20120731
  Receipt Date: 20120705
  Transmission Date: 20120928
  Serious: Yes (Other)
  Sender: FDA-Public Use
  Company Number: AU-PFIZER INC-2012167848

PATIENT
  Age: 72 Year
  Sex: Female

DRUGS (3)
  1. SYMBICORT [Concomitant]
     Dosage: 400 UG, UNK
     Dates: start: 20000101
  2. FLUTICASONE FUROATE [Concomitant]
     Dosage: UNK
     Dates: start: 20120101
  3. PANTOPRAZOLE [Suspect]
     Dosage: 40 MG, DAILY
     Route: 048
     Dates: start: 20060106

REACTIONS (3)
  - OEDEMA MOUTH [None]
  - GINGIVAL DISORDER [None]
  - THROAT IRRITATION [None]
